FAERS Safety Report 18392975 (Version 1)
Quarter: 2020Q4

REPORT INFORMATION
  Report Type: Spontaneous
  Country: BE (occurrence: BE)
  Receive Date: 20201016
  Receipt Date: 20201016
  Transmission Date: 20210114
  Serious: Yes (Other)
  Sender: FDA-Public Use
  Company Number: BE-PFIZER INC-05H-013-0292281-00

PATIENT
  Age: 79 Year
  Sex: Female
  Weight: 65 kg

DRUGS (4)
  1. PROPOFOL. [Concomitant]
     Active Substance: PROPOFOL
     Indication: ANAESTHESIA
     Dosage: UNK
     Route: 042
  2. EPINEPHRINE\ROPIVACAINE [Interacting]
     Active Substance: EPINEPHRINE\ROPIVACAINE
     Indication: NEUROMUSCULAR BLOCKING THERAPY
     Dosage: TWENTY MILLILITERS OF 0.5% ROPIVACAINE WITH 1:200,000 EPINEPHRINE WAS INJECTED
  3. LIDOCAINE. [Concomitant]
     Active Substance: LIDOCAINE
     Indication: LOCAL ANAESTHESIA
     Dosage: 2 ML
  4. ATRACURIUM BESILATE [Suspect]
     Active Substance: ATRACURIUM BESYLATE
     Dosage: 50 MG

REACTIONS (3)
  - Wrong product administered [Recovered/Resolved]
  - Drug interaction [Recovered/Resolved]
  - Neuromuscular block prolonged [Recovered/Resolved]
